FAERS Safety Report 16251890 (Version 2)
Quarter: 2022Q1

REPORT INFORMATION
  Report Type: Other
  Country: CA (occurrence: CA)
  Receive Date: 20190429
  Receipt Date: 20220321
  Transmission Date: 20220424
  Serious: Yes (Other)
  Sender: FDA-Public Use
  Company Number: CA-PURDUE PHARMA-CAN-2019-0010011

PATIENT
  Age: 82 Year
  Sex: Female

DRUGS (1)
  1. HYDROMORPHONE HYDROCHLORIDE [Suspect]
     Active Substance: HYDROMORPHONE HYDROCHLORIDE
     Indication: Procedural pain
     Dosage: UNK
     Route: 065

REACTIONS (2)
  - Delirium [Unknown]
  - Confusional state [Unknown]
